FAERS Safety Report 8882504 (Version 1)
Quarter: 2012Q4

REPORT INFORMATION
  Report Type: 
  Country: US (occurrence: US)
  Receive Date: 20121103
  Receipt Date: 20121103
  Transmission Date: 20130627
  Serious: Yes (Other)
  Sender: FDA-Public Use
  Company Number: US-US-EMD SERONO, INC.-7171247

PATIENT
  Sex: Female

DRUGS (1)
  1. REBIF [Suspect]
     Indication: PRODUCT USED FOR UNKNOWN INDICATION
     Route: 058
     Dates: start: 20021027

REACTIONS (3)
  - Cellulitis [Recovered/Resolved]
  - Injection site atrophy [Not Recovered/Not Resolved]
  - Influenza [Recovering/Resolving]
